FAERS Safety Report 17855638 (Version 1)
Quarter: 2020Q2

REPORT INFORMATION
  Report Type: Spontaneous
  Country: FR (occurrence: FR)
  Receive Date: 20200603
  Receipt Date: 20200603
  Transmission Date: 20200714
  Serious: Yes (Hospitalization)
  Sender: FDA-Public Use
  Company Number: FR-SUN PHARMACEUTICAL INDUSTRIES LTD-2020RR-249126

PATIENT
  Age: 28 Year
  Sex: Male
  Weight: 74 kg

DRUGS (1)
  1. PARACETAMOL [Suspect]
     Active Substance: ACETAMINOPHEN
     Indication: HEADACHE
     Dosage: 1 GRAM/3 HOUR
     Route: 048
     Dates: start: 20200318, end: 20200325

REACTIONS (3)
  - Hepatocellular injury [Recovering/Resolving]
  - Accidental overdose [Recovering/Resolving]
  - Inflammation [Recovering/Resolving]

NARRATIVE: CASE EVENT DATE: 20200318
